FAERS Safety Report 12274563 (Version 1)
Quarter: 2016Q2

REPORT INFORMATION
  Report Type: Spontaneous
  Country: US (occurrence: US)
  Receive Date: 20160415
  Receipt Date: 20160415
  Transmission Date: 20160815
  Serious: No
  Sender: FDA-Public Use
  Company Number: US-ALLERGAN-1505648US

PATIENT
  Sex: Female

DRUGS (1)
  1. LATISSE [Suspect]
     Active Substance: BIMATOPROST
     Indication: GROWTH OF EYELASHES
     Dosage: 1 GTT NIGHTLY TO EACH EYELID
     Route: 061

REACTIONS (3)
  - Dark circles under eyes [Recovering/Resolving]
  - Therapeutic response decreased [Unknown]
  - Ocular hyperaemia [Not Recovered/Not Resolved]
